FAERS Safety Report 7555733-5 (Version None)
Quarter: 2011Q2

REPORT INFORMATION
  Report Type: 
  Country: None (occurrence: None)
  Receive Date: 20110617
  Receipt Date: 20110607
  Transmission Date: 20111010
  Serious: Yes (Other)
  Sender: FDA-Public Use
  Company Number: JP-GILEAD-E2B_00001336

PATIENT
  Age: 53 Year
  Sex: Female

DRUGS (2)
  1. HEPSERA [Suspect]
     Indication: HEPATITIS B
     Route: 048
     Dates: start: 20100401
  2. LAMIVUDINE(PEPFAR) [Concomitant]
     Indication: HEPATITIS B
     Route: 048
     Dates: start: 20030101, end: 20100401

REACTIONS (2)
  - ANOSMIA [None]
  - HYPOSMIA [None]
